FAERS Safety Report 23671524 (Version 9)
Quarter: 2024Q2

REPORT INFORMATION
  Report Type: Report from Study
  Country: IT (occurrence: IT)
  Receive Date: 20240326
  Receipt Date: 20240624
  Transmission Date: 20240716
  Serious: Yes (Hospitalization)
  Sender: FDA-Public Use
  Company Number: IT-SA-SAC20240111001959

PATIENT
  Age: 61 Year
  Sex: Female
  Weight: 58 kg

DRUGS (38)
  1. ISATUXIMAB [Suspect]
     Active Substance: ISATUXIMAB
     Indication: Plasma cell myeloma refractory
     Dosage: 10 MG/KG, QW
     Dates: start: 20231120, end: 20231201
  2. ISATUXIMAB [Suspect]
     Active Substance: ISATUXIMAB
     Dosage: 10 MG/KG, QW
     Route: 065
     Dates: start: 20231211, end: 20231212
  3. ISATUXIMAB [Suspect]
     Active Substance: ISATUXIMAB
     Dosage: 10 MG/KG, BIW
     Dates: start: 20231218, end: 20240103
  4. ISATUXIMAB [Suspect]
     Active Substance: ISATUXIMAB
     Dosage: 10 MG/KG, BIW
     Dates: start: 20240117, end: 20240118
  5. ISATUXIMAB [Suspect]
     Active Substance: ISATUXIMAB
     Dosage: 10 MG/KG, BIW
     Dates: start: 20240207, end: 20240207
  6. ISATUXIMAB [Suspect]
     Active Substance: ISATUXIMAB
     Dosage: 10 MG/KG, BIW
     Dates: start: 20240307, end: 20240321
  7. ISATUXIMAB [Suspect]
     Active Substance: ISATUXIMAB
     Dosage: 10 MG/KG, BIW
     Dates: start: 20240404, end: 20240418
  8. DEXAMETHASONE [Suspect]
     Active Substance: DEXAMETHASONE
     Indication: Plasma cell myeloma refractory
     Dosage: 20 MG, Q3W
     Dates: start: 20231120, end: 20231128
  9. DEXAMETHASONE [Suspect]
     Active Substance: DEXAMETHASONE
     Dosage: 4 MG, QD
     Dates: start: 20231204, end: 20231217
  10. DEXAMETHASONE [Suspect]
     Active Substance: DEXAMETHASONE
     Dosage: 4 MG, QD
     Dates: start: 20231218, end: 20240102
  11. DEXAMETHASONE [Suspect]
     Active Substance: DEXAMETHASONE
     Dosage: 20 MG, BIW
     Route: 065
     Dates: start: 20240103, end: 20240111
  12. DEXAMETHASONE [Suspect]
     Active Substance: DEXAMETHASONE
     Dosage: 20 MG TWICE A WEEK FOR 3 WEEKS
     Route: 065
     Dates: start: 20240117, end: 20240201
  13. DEXAMETHASONE [Suspect]
     Active Substance: DEXAMETHASONE
     Dosage: 25 MG, QW (FOR 3 WEEKS)
     Route: 065
     Dates: start: 20240207, end: 20240221
  14. DEXAMETHASONE [Suspect]
     Active Substance: DEXAMETHASONE
     Dosage: 8MG, TWICE A WEEK FOR 1 WEEK
     Route: 065
     Dates: start: 20240221, end: 20240228
  15. DEXAMETHASONE [Suspect]
     Active Substance: DEXAMETHASONE
     Dosage: 30 MG, BIW (FIRST DAY 20 MG AND SECOND DAY 10 MG)
     Route: 065
     Dates: start: 20240307, end: 20240313
  16. DEXAMETHASONE [Suspect]
     Active Substance: DEXAMETHASONE
     Dosage: 20 MG, TWICE A WEEK FOR 1 WEEK
     Route: 065
     Dates: start: 20240314, end: 20240320
  17. DEXAMETHASONE [Suspect]
     Active Substance: DEXAMETHASONE
     Dosage: 25 MG, BIW (FIRST DAY 20 MG AND SECOND DAY 10 MG)
     Route: 065
     Dates: start: 20240321, end: 20240327
  18. DEXAMETHASONE [Suspect]
     Active Substance: DEXAMETHASONE
     Dosage: 30 MG, BIW(FIRST DAY 20 MG AND SECOND DAY 10 MG)
     Route: 065
     Dates: start: 20240404, end: 20240410
  19. DEXAMETHASONE [Suspect]
     Active Substance: DEXAMETHASONE
     Dosage: 20 MG, BIW (FOR 1 WEEK)
     Route: 065
     Dates: start: 20240411, end: 20240419
  20. CARFILZOMIB [Suspect]
     Active Substance: CARFILZOMIB
     Indication: Plasma cell myeloma refractory
     Dosage: 20 MG/M2, QOW
     Dates: start: 20231120, end: 20231126
  21. CARFILZOMIB [Suspect]
     Active Substance: CARFILZOMIB
     Dosage: 56 MG/M2, BIW
     Dates: start: 20231127, end: 20231130
  22. CARFILZOMIB [Suspect]
     Active Substance: CARFILZOMIB
     Dosage: 56 MG/M2, BIW
     Dates: start: 20231218, end: 20240104
  23. CARFILZOMIB [Suspect]
     Active Substance: CARFILZOMIB
     Dosage: 56 MG/M2 TWICE A WEEK FOR 3 WEEKS
     Dates: start: 20240117, end: 20240201
  24. CARFILZOMIB [Suspect]
     Active Substance: CARFILZOMIB
     Dosage: 56 MG/M2 TWICE A WEEK FOR 3 WEEKS
     Dates: start: 20240118, end: 20240118
  25. CARFILZOMIB [Suspect]
     Active Substance: CARFILZOMIB
     Dosage: 56 MG/M2 TWICE A WEEK FOR 3 WEEKS
     Dates: start: 20240207, end: 20240222
  26. CARFILZOMIB [Suspect]
     Active Substance: CARFILZOMIB
     Dosage: 56 MG/M2, BIW (FOR 3 WEEKS)
     Dates: start: 20240307, end: 20240322
  27. CARFILZOMIB [Suspect]
     Active Substance: CARFILZOMIB
     Dosage: 56 MG/M2, BIW (FOR 3 WEEKS)
     Dates: start: 20240404, end: 20240419
  28. CARFILZOMIB [Suspect]
     Active Substance: CARFILZOMIB
     Dosage: 56 MG/KG, TWICE A WEEK FOR 3 WEEKS
     Dates: start: 20240118, end: 20240118
  29. LEVOTHYROXINE [Concomitant]
     Active Substance: LEVOTHYROXINE\LEVOTHYROXINE SODIUM
     Indication: Autoimmune thyroiditis
     Dosage: UNK
     Dates: start: 2018
  30. LANSOPRAZOLE [Concomitant]
     Active Substance: LANSOPRAZOLE
     Indication: Gastrooesophageal reflux disease
     Dosage: UNK
     Dates: start: 20231120
  31. ACYCLOVIR [Concomitant]
     Active Substance: ACYCLOVIR
     Indication: Prophylaxis
     Dosage: UNK
     Dates: start: 20231120
  32. COTRIMOXAZOLE [Concomitant]
     Active Substance: SULFAMETHOXAZOLE\TRIMETHOPRIM
     Indication: Prophylaxis
     Dosage: UNK
     Route: 065
     Dates: start: 20231120
  33. POTASSIUM CHLORIDE [Concomitant]
     Active Substance: POTASSIUM CHLORIDE
     Indication: Hypokalaemia
     Dosage: UNK
     Dates: start: 20231123, end: 20231207
  34. ENOXAPARIN [Concomitant]
     Active Substance: ENOXAPARIN
     Indication: Immobile
     Dosage: UNK
     Dates: start: 20231218, end: 20240122
  35. ENOXAPARIN [Concomitant]
     Active Substance: ENOXAPARIN
     Dosage: UNK
     Dates: start: 20240202, end: 20240221
  36. ENOXAPARIN [Concomitant]
     Active Substance: ENOXAPARIN
     Dosage: UNK
     Dates: start: 20240229
  37. ACETAMINOPHEN [Concomitant]
     Active Substance: ACETAMINOPHEN
     Indication: Prophylaxis
     Dosage: UNK UNK, QCY
     Dates: start: 20231120
  38. CHLORPHENIRAMINE MALEATE [Concomitant]
     Active Substance: CHLORPHENIRAMINE MALEATE
     Indication: Prophylaxis
     Dosage: UNK UNK, QCY
     Dates: start: 20231120

REACTIONS (10)
  - Soft tissue infection [Recovered/Resolved]
  - Thrombocytopenia [Recovered/Resolved]
  - Thrombocytopenia [Recovered/Resolved]
  - Neutropenia [Recovered/Resolved]
  - Neutropenia [Recovered/Resolved]
  - Neutropenia [Recovered/Resolved]
  - Thrombocytopenia [Not Recovered/Not Resolved]
  - Infusion related reaction [Recovered/Resolved]
  - Thrombocytopenia [Recovered/Resolved]
  - Cushingoid [Recovered/Resolved]

NARRATIVE: CASE EVENT DATE: 20231122
